FAERS Safety Report 4706085-7 (Version None)
Quarter: 2005Q2

REPORT INFORMATION
  Report Type: 
  Country: None (occurrence: None)
  Receive Date: 20050627
  Receipt Date: 20050207
  Transmission Date: 20051028
  Serious: Yes (Other)
  Sender: FDA-Public Use
  Company Number: US-JNJFOC-20050201979

PATIENT
  Age: 23 Year
  Sex: Male

DRUGS (2)
  1. DURAGESIC-100 [Suspect]
     Dosage: 25 UG/HR, TRANSDERMAL
     Route: 062
     Dates: start: 20050205, end: 20050206
  2. XANAX [Concomitant]

REACTIONS (4)
  - DEPRESSED LEVEL OF CONSCIOUSNESS [None]
  - DRUG ABUSER [None]
  - GAIT DISTURBANCE [None]
  - MUSCLE SPASTICITY [None]
